FAERS Safety Report 5420963-5 (Version None)
Quarter: 2007Q3

REPORT INFORMATION
  Report Type: 
  Country: None (occurrence: None)
  Receive Date: 20070821
  Receipt Date: 20070814
  Transmission Date: 20080115
  Serious: Yes (Hospitalization)
  Sender: FDA-Public Use
  Company Number: HQWYE551615AUG07

PATIENT
  Sex: Male
  Weight: 72.64 kg

DRUGS (1)
  1. INDERAL [Suspect]
     Indication: ESSENTIAL TREMOR
     Dosage: UNKNOWN
     Route: 048
     Dates: start: 20070701

REACTIONS (2)
  - HEADACHE [None]
  - PHARYNGOLARYNGEAL PAIN [None]
